FAERS Safety Report 8087563-2 (Version None)
Quarter: 2012Q1

REPORT INFORMATION
  Report Type: 
  Country: None (occurrence: None)
  Receive Date: 20120128
  Receipt Date: 20110525
  Transmission Date: 20120608
  Serious: No
  Sender: FDA-Public Use
  Company Number: US-ABBOTT-11P-163-0728265-00

PATIENT
  Age: 32 Year
  Sex: Female

DRUGS (2)
  1. UNKNOWN TOPICAL MEDICATIONS [Concomitant]
     Indication: PRODUCT USED FOR UNKNOWN INDICATION
  2. HUMIRA [Suspect]
     Indication: PSORIASIS
     Dosage: ON DAY ONE
     Dates: start: 20110524

REACTIONS (2)
  - INJECTION SITE ERYTHEMA [None]
  - MYALGIA [None]
